FAERS Safety Report 8210148-1 (Version None)
Quarter: 2012Q1

REPORT INFORMATION
  Report Type: 
  Country: None (occurrence: None)
  Receive Date: 20120314
  Receipt Date: 20120104
  Transmission Date: 20120608
  Serious: No
  Sender: FDA-Public Use
  Company Number: US-ASTRAZENECA-2012SE00445

PATIENT
  Age: 58 Year
  Sex: Male

DRUGS (2)
  1. TOPROL-XL [Suspect]
     Route: 048
  2. UNSPECIFIED MEDICATIONS [Suspect]
     Route: 065

REACTIONS (4)
  - EYE DISORDER [None]
  - TREMOR [None]
  - THINKING ABNORMAL [None]
  - VISION BLURRED [None]
